FAERS Safety Report 6272873-1 (Version None)
Quarter: 2009Q3

REPORT INFORMATION
  Report Type: 
  Country: None (occurrence: None)
  Receive Date: 20090717
  Receipt Date: 20090714
  Transmission Date: 20100115
  Serious: Yes (Other)
  Sender: FDA-Public Use
  Company Number: DE-GENENTECH-286337

PATIENT

DRUGS (5)
  1. RITUXIMAB [Suspect]
     Indication: B-CELL LYMPHOMA
  2. DOXORUBICIN HCL [Concomitant]
     Indication: B-CELL LYMPHOMA
  3. VINCRISTINE [Concomitant]
  4. CYCLOPHOSPHAMIDE [Concomitant]
  5. PREDNISONE [Concomitant]
     Indication: B-CELL LYMPHOMA

REACTIONS (1)
  - CARDIAC FAILURE CONGESTIVE [None]
